FAERS Safety Report 4299319-7 (Version None)
Quarter: 2004Q1

REPORT INFORMATION
  Report Type: 
  Country: None (occurrence: None)
  Receive Date: 20040217
  Receipt Date: 20030206
  Transmission Date: 20041129
  Serious: Yes (Hospitalization)
  Sender: FDA-Public Use
  Company Number: US028707

PATIENT
  Age: 61 Year
  Sex: Male

DRUGS (2)
  1. ETANERCEPT [Suspect]
     Indication: ANKYLOSING SPONDYLITIS
     Dosage: 25 MG, TWICE WEEKLY, SC
     Route: 058
     Dates: start: 20020904
  2. ISONIAZID [Concomitant]

REACTIONS (5)
  - ASTHENIA [None]
  - FATIGUE [None]
  - HEPATIC STEATOSIS [None]
  - HEPATITIS [None]
  - LABORATORY TEST ABNORMAL [None]
